FAERS Safety Report 7086192-7 (Version None)
Quarter: 2010Q4

REPORT INFORMATION
  Report Type: 
  Country: None (occurrence: None)
  Receive Date: 20101105
  Receipt Date: 20101029
  Transmission Date: 20110411
  Serious: Yes (Other)
  Sender: FDA-Public Use
  Company Number: US-SANOFI-AVENTIS-2010SA057416

PATIENT
  Age: 56 Year
  Sex: Female
  Weight: 97.52 kg

DRUGS (7)
  1. ARAVA [Suspect]
     Indication: RHEUMATOID ARTHRITIS
     Route: 048
     Dates: start: 20100128, end: 20100825
  2. ASPIRIN [Concomitant]
     Route: 048
  3. BROMALINE [Concomitant]
     Indication: NASAL CONGESTION
     Route: 048
  4. TYLENOL (CAPLET) [Concomitant]
     Indication: ARTHRITIS
     Route: 048
  5. LOVAZA [Concomitant]
     Route: 048
  6. FOLIC ACID [Concomitant]
     Route: 048
  7. PREDNISONE [Concomitant]
     Route: 048

REACTIONS (8)
  - ABASIA [None]
  - ALOPECIA [None]
  - AMNESIA [None]
  - ARTHRALGIA [None]
  - ARTHRITIS [None]
  - ASTHENIA [None]
  - DIZZINESS [None]
  - MYALGIA [None]
